FAERS Safety Report 19723973 (Version 1)
Quarter: 2021Q3

REPORT INFORMATION
  Report Type: Other
  Country: DE (occurrence: DE)
  Receive Date: 20210820
  Receipt Date: 20210820
  Transmission Date: 20211014
  Serious: Yes (Life-Threatening, Hospitalization, Congenital Anomaly, Other)
  Sender: FDA-Public Use
  Company Number: DE-AUROBINDO-AUR-APL-2012-03068

PATIENT
  Sex: Female
  Weight: 3.5 kg

DRUGS (3)
  1. LAMOTRIGINE AUROBINDO TABLETS FOR SUSPENSION FOR ORAL USE 5MG [Suspect]
     Active Substance: LAMOTRIGINE
     Dosage: 275 MILLIGRAM, ONCE A DAY,  DURING 1ST TRIMESTER
     Route: 064
     Dates: end: 20110212
  2. FOLIC ACID. [Concomitant]
     Active Substance: FOLIC ACID
     Indication: PROPHYLAXIS OF NEURAL TUBE DEFECT
     Dosage: 5 MILLIGRAM, ONCE A DAY
     Route: 064
  3. LAMOTRIGINE AUROBINDO TABLETS FOR SUSPENSION FOR ORAL USE 5MG [Suspect]
     Active Substance: LAMOTRIGINE
     Indication: EPILEPSY
     Dosage: 500 MILLIGRAM, DAILY, DURING 1ST TRIMESTER
     Route: 064
     Dates: end: 20110212

REACTIONS (7)
  - Talipes [Unknown]
  - Neonatal respiratory distress [Recovered/Resolved]
  - Dysmorphism [Unknown]
  - Congenital ureteric anomaly [Unknown]
  - Atrial septal defect [Unknown]
  - Bradycardia neonatal [Recovered/Resolved]
  - Foetal exposure during pregnancy [Unknown]

NARRATIVE: CASE EVENT DATE: 20110212
